FAERS Safety Report 19197529 (Version 1)
Quarter: 2021Q2

REPORT INFORMATION
  Report Type: Spontaneous
  Country: US (occurrence: US)
  Receive Date: 20210430
  Receipt Date: 20210430
  Transmission Date: 20210717
  Serious: Yes (Life-Threatening, Hospitalization, Other)
  Sender: FDA-Public Use
  Company Number: US-PIRAMAL PHARMA LIMITED-2021-PEL-000259

PATIENT

DRUGS (4)
  1. DILAUDID [Suspect]
     Active Substance: HYDROMORPHONE HYDROCHLORIDE
     Indication: PRODUCT USED FOR UNKNOWN INDICATION
     Dosage: UNK
     Route: 037
  2. BUPIVICAINE [Suspect]
     Active Substance: BUPIVACAINE
     Indication: PRODUCT USED FOR UNKNOWN INDICATION
     Dosage: UNK
     Route: 037
  3. BACLOFEN. [Suspect]
     Active Substance: BACLOFEN
     Indication: PRODUCT USED FOR UNKNOWN INDICATION
     Dosage: 200 TIMES THE DOSE DELIVERED IN HOSPITAL
     Route: 037
  4. BACLOFEN. [Suspect]
     Active Substance: BACLOFEN
     Dosage: UNK
     Route: 037

REACTIONS (13)
  - Withdrawal syndrome [Unknown]
  - Brain injury [Unknown]
  - Muscle rigidity [Unknown]
  - Incorrect dose administered [Unknown]
  - Brain death [Unknown]
  - Leukocytosis [Unknown]
  - Metabolic encephalopathy [Unknown]
  - Myoclonus [Unknown]
  - Dyspnoea [Unknown]
  - Cardiac arrest [Unknown]
  - Pneumonia [Unknown]
  - Hallucination, visual [Unknown]
  - Device malfunction [Unknown]
